FAERS Safety Report 5235386-1 (Version None)
Quarter: 2007Q1

REPORT INFORMATION
  Report Type: 
  Country: None (occurrence: None)
  Receive Date: 20070212
  Receipt Date: 20070202
  Transmission Date: 20070707
  Serious: Yes (Other)
  Sender: FDA-Public Use
  Company Number: 2007UW02537

PATIENT
  Age: 50 Year
  Sex: Male

DRUGS (4)
  1. SEROQUEL [Suspect]
     Indication: PSYCHOTIC DISORDER
     Route: 048
     Dates: start: 20050801
  2. SEROQUEL [Suspect]
     Indication: AGGRESSION
     Route: 048
     Dates: start: 20050801
  3. CELEXA [Concomitant]
  4. THIORIDAZINE HCL [Concomitant]
     Indication: PSYCHOTIC DISORDER

REACTIONS (1)
  - WHITE BLOOD CELL COUNT DECREASED [None]
